FAERS Safety Report 16990154 (Version 1)
Quarter: 2019Q4

REPORT INFORMATION
  Report Type: Spontaneous
  Country: JP (occurrence: JP)
  Receive Date: 20191104
  Receipt Date: 20191104
  Transmission Date: 20200122
  Serious: Yes (Other)
  Sender: FDA-Public Use
  Company Number: JP-PFIZER INC-2019466567

PATIENT
  Age: 6 Decade
  Sex: Male

DRUGS (2)
  1. ENBREL [Suspect]
     Active Substance: ETANERCEPT
  2. RHEUMATREX [Suspect]
     Active Substance: METHOTREXATE SODIUM

REACTIONS (1)
  - Gastric cancer [Unknown]
